FAERS Safety Report 9243098 (Version 1)
Quarter: 2013Q2

REPORT INFORMATION
  Report Type: Spontaneous
  Country: ES (occurrence: ES)
  Receive Date: 20130419
  Receipt Date: 20130419
  Transmission Date: 20140414
  Serious: Yes (Other)
  Sender: FDA-Public Use
  Company Number: ES-TEVA-397308ISR

PATIENT
  Age: 66 Year
  Sex: Male

DRUGS (5)
  1. MONTELUKAST [Suspect]
     Indication: ASTHMA
     Dosage: 10 MILLIGRAM DAILY;
     Route: 065
  2. SALBUTAMOL [Concomitant]
     Route: 065
  3. FLUTICASONE PROPIONATE [Concomitant]
     Route: 065
  4. LOSARTAN [Concomitant]
     Route: 065
  5. TORASEMIDE [Concomitant]
     Route: 065

REACTIONS (4)
  - Nightmare [Unknown]
  - Hallucination [Unknown]
  - Insomnia [Unknown]
  - Aggression [Unknown]
